FAERS Safety Report 6183566-3 (Version None)
Quarter: 2009Q2

REPORT INFORMATION
  Report Type: 
  Country: None (occurrence: None)
  Receive Date: 20090508
  Receipt Date: 20090506
  Transmission Date: 20091009
  Serious: Yes (Hospitalization)
  Sender: FDA-Public Use
  Company Number: US-BRISTOL-MYERS SQUIBB COMPANY-14613855

PATIENT
  Age: 41 Year
  Sex: Female
  Weight: 65 kg

DRUGS (2)
  1. ORENCIA [Suspect]
     Indication: RHEUMATOID ARTHRITIS
     Dosage: LAST INFUSION PRIOR TO EVENT WAS ON 01-DEC-2008
     Dates: start: 20081201, end: 20081201
  2. CORTEF [Concomitant]

REACTIONS (2)
  - HEPATITIS [None]
  - PYREXIA [None]
